FAERS Safety Report 5360963-7 (Version None)
Quarter: 2007Q2

REPORT INFORMATION
  Report Type: 
  Country: None (occurrence: None)
  Receive Date: 20070618
  Receipt Date: 20070611
  Transmission Date: 20071010
  Serious: Yes (Life-Threatening, Hospitalization)
  Sender: FDA-Public Use
  Company Number: FR-BOEHRINGER INGELHEIM PHARMACEUTICALS, INC.-2007-FF-00598FF

PATIENT
  Sex: Male
  Weight: 65 kg

DRUGS (7)
  1. SPIRIVA [Suspect]
     Indication: CHRONIC OBSTRUCTIVE PULMONARY DISEASE
     Route: 055
     Dates: start: 20070512
  2. DESLORATADINE [Concomitant]
  3. MUCOMYST [Concomitant]
  4. EUPHYLLINE [Concomitant]
  5. SERETIDE [Concomitant]
  6. VENTOLIN [Concomitant]
  7. ATROVENT [Concomitant]

REACTIONS (3)
  - ATRIAL FIBRILLATION [None]
  - CARDIAC FLUTTER [None]
  - SUPRAVENTRICULAR TACHYCARDIA [None]
